FAERS Safety Report 18807741 (Version 1)
Quarter: 2021Q1

REPORT INFORMATION
  Report Type: Report from Study
  Country: CA (occurrence: CA)
  Receive Date: 20210129
  Receipt Date: 20210129
  Transmission Date: 20210419
  Serious: Yes (Other)
  Sender: FDA-Public Use
  Company Number: CA-JNJFOC-20210139404

PATIENT
  Age: 16 Year
  Sex: Female
  Weight: 49.6 kg

DRUGS (1)
  1. REMICADE [Suspect]
     Active Substance: INFLIXIMAB
     Indication: COLITIS ULCERATIVE
     Dosage: THE PRESCRIPTION WOULD BE AT 350 MG EVERY 4 TO 6 WEEKS
     Route: 042
     Dates: start: 20200917

REACTIONS (1)
  - Colitis ulcerative [Unknown]
